FAERS Safety Report 6098953-1 (Version None)
Quarter: 2009Q1

REPORT INFORMATION
  Report Type: 
  Country: None (occurrence: None)
  Receive Date: 20090302
  Receipt Date: 20090223
  Transmission Date: 20090719
  Serious: Yes (Hospitalization, Disabling, Other)
  Sender: FDA-Public Use
  Company Number: US-MERCK-0704USA05726

PATIENT
  Age: 61 Year
  Sex: Female

DRUGS (6)
  1. FOSAMAX [Suspect]
     Indication: OSTEOPOROSIS
     Route: 048
     Dates: start: 20020301, end: 20051207
  2. VERAPAMIL [Concomitant]
     Indication: ESSENTIAL HYPERTENSION
     Route: 065
     Dates: start: 20010101
  3. MOBIC [Concomitant]
     Indication: ARTHRITIS
     Route: 065
     Dates: start: 20020101
  4. ATARAX [Concomitant]
     Indication: BREAST CANCER
     Route: 065
     Dates: start: 20010101, end: 20050101
  5. GLOBULIN, IMMUNE [Concomitant]
     Route: 065
     Dates: start: 20010101, end: 20050101
  6. TAMOXIFEN CITRATE [Concomitant]
     Indication: BREAST CANCER
     Route: 065
     Dates: start: 20010101, end: 20050101

REACTIONS (29)
  - ABSCESS [None]
  - ANAEMIA [None]
  - ARTHROPATHY [None]
  - ATRIAL FIBRILLATION [None]
  - BASAL CELL CARCINOMA [None]
  - CATARACT [None]
  - DEHYDRATION [None]
  - DIASTOLIC DYSFUNCTION [None]
  - DRY MOUTH [None]
  - FALL [None]
  - GASTRIC ULCER [None]
  - GASTRITIS [None]
  - GASTROENTERITIS [None]
  - HERPES ZOSTER [None]
  - HYPOKALAEMIA [None]
  - IMPAIRED GASTRIC EMPTYING [None]
  - LARGE INTESTINE PERFORATION [None]
  - MACULAR DEGENERATION [None]
  - MALNUTRITION [None]
  - MIGRAINE [None]
  - NEOPLASM MALIGNANT [None]
  - OSTEONECROSIS [None]
  - PAIN IN EXTREMITY [None]
  - PNEUMONIA [None]
  - RENAL FAILURE [None]
  - RENAL FAILURE ACUTE [None]
  - RETINAL DETACHMENT [None]
  - SICCA SYNDROME [None]
  - WOUND INFECTION [None]
